FAERS Safety Report 7595009-3 (Version None)
Quarter: 2011Q2

REPORT INFORMATION
  Report Type: 
  Country: None (occurrence: None)
  Receive Date: 20110620
  Receipt Date: 20110414
  Transmission Date: 20111010
  Serious: Yes (Hospitalization)
  Sender: FDA-Public Use
  Company Number: UTC-006366

PATIENT
  Age: 69 Year
  Sex: Female
  Weight: 68.18 kg

DRUGS (2)
  1. TYVASO [Suspect]
     Indication: PULMONARY ARTERIAL HYPERTENSION
     Dosage: (30 MCG), INHALATION
     Route: 055
     Dates: start: 20110301
  2. TRACLEER [Concomitant]

REACTIONS (1)
  - CYSTITIS [None]
